FAERS Safety Report 6263119 (Version 12)
Quarter: 2013Q4

REPORT INFORMATION
  Report Type: Spontaneous
  Country: US (occurrence: US)
  Receive Date: 20070316
  Receipt Date: 20131018
  Transmission Date: 20140711
  Serious: Yes (Death, Hospitalization, Other)
  Sender: FDA-Public Use
  Company Number: PHEH2007US02885

PATIENT
  Sex: Male

DRUGS (44)
  1. ZOMETA [Suspect]
     Dates: start: 200511, end: 200611
  2. XELODA [Suspect]
  3. ASMANEX [Concomitant]
  4. COMBIVENT                               /GFR/ [Concomitant]
  5. ZETIA [Concomitant]
  6. ADVAIR [Concomitant]
  7. LASIX [Concomitant]
  8. CELEBREX [Concomitant]
  9. LAPATINIB [Concomitant]
  10. METHOTREXATE [Concomitant]
  11. NEXIUM [Concomitant]
  12. DIFLUCAN [Concomitant]
  13. HERCEPTIN ^GENENTECH^ [Concomitant]
  14. FISH OIL [Concomitant]
  15. SPIRIVA ^PFIZER^ [Concomitant]
  16. PREDNISONE [Concomitant]
  17. DOXIL [Concomitant]
  18. MULTIVITAMINS [Concomitant]
  19. ADVIL                              /00044201/ [Concomitant]
  20. CHANTIX [Concomitant]
  21. DECADRON                                /CAN/ [Concomitant]
  22. VITAMIN B COMPLEX [Concomitant]
  23. THIAMINE [Concomitant]
  24. CIPRO ^MILES^ [Concomitant]
     Dosage: 750 MG, BID
     Route: 048
  25. DURAGESIC [Concomitant]
  26. PROTONIX ^PHARMACIA^ [Concomitant]
  27. MEGACE [Concomitant]
     Dosage: 400 MG, BID
     Route: 048
  28. REGLAN                                  /USA/ [Concomitant]
     Dosage: 10 MG, BID
  29. AMBIEN [Concomitant]
  30. LORTAB [Concomitant]
  31. TYLENOL [Concomitant]
  32. SOLU-MEDROL [Concomitant]
     Dosage: 40 MG, Q6H
  33. XOPENEX [Concomitant]
  34. NICOTINE [Concomitant]
  35. XANAX [Concomitant]
  36. FOLIC ACID [Concomitant]
  37. NEURONTIN [Concomitant]
  38. ROBITUSSIN ^WYETH^ [Concomitant]
  39. ARIXTRA [Concomitant]
  40. COUMADINE [Concomitant]
  41. LEUCOVORIN [Concomitant]
  42. FEMARA [Concomitant]
  43. FASLODEX [Concomitant]
  44. ABRAXANE [Concomitant]

REACTIONS (124)
  - Death [Fatal]
  - Lymphadenopathy [Unknown]
  - Lung infiltration [Unknown]
  - Osteonecrosis of jaw [Unknown]
  - General physical health deterioration [Unknown]
  - Pain [Unknown]
  - Anxiety [Unknown]
  - Decreased interest [Unknown]
  - Arthralgia [Unknown]
  - Renal atrophy [Unknown]
  - Atelectasis [Unknown]
  - Urinary tract infection [Recovered/Resolved]
  - Diarrhoea [Unknown]
  - Dehydration [Unknown]
  - Mental status changes [Unknown]
  - Hypercholesterolaemia [Unknown]
  - Intervertebral disc degeneration [Unknown]
  - Bronchiolitis [Unknown]
  - Sinusitis [Unknown]
  - Asthma [Unknown]
  - Rhinitis allergic [Unknown]
  - Osteoarthritis [Unknown]
  - Peripheral vascular disorder [Unknown]
  - Cough [Unknown]
  - Dyspnoea [Not Recovered/Not Resolved]
  - Sciatica [Unknown]
  - Exostosis [Unknown]
  - Hypertension [Unknown]
  - Benign prostatic hyperplasia [Unknown]
  - Bursitis [Unknown]
  - Asthenia [Unknown]
  - Hypotension [Unknown]
  - Pyrexia [Unknown]
  - Leukopenia [Unknown]
  - Retroperitoneal lymphadenopathy [Unknown]
  - Hypoalbuminaemia [Unknown]
  - Hyperproteinaemia [Unknown]
  - Lobar pneumonia [Recovered/Resolved]
  - Chronic obstructive pulmonary disease [Unknown]
  - Pseudomonal sepsis [Unknown]
  - Adrenal insufficiency [Unknown]
  - Glucose tolerance impaired [Unknown]
  - Fatigue [Unknown]
  - Large intestine polyp [Unknown]
  - Pulmonary embolism [Unknown]
  - Aortic valve incompetence [Unknown]
  - Tricuspid valve incompetence [Unknown]
  - Mitral valve incompetence [Unknown]
  - Dermal cyst [Unknown]
  - Pleural effusion [Unknown]
  - Rheumatoid arthritis [Unknown]
  - Local swelling [Unknown]
  - Gastritis [Unknown]
  - Abdominal hernia [Unknown]
  - Amnesia [Unknown]
  - Abdominal pain [Unknown]
  - Left ventricular dysfunction [Unknown]
  - Haemorrhoids [Unknown]
  - Weight decreased [Unknown]
  - Spinal osteoarthritis [Unknown]
  - Osteoarthropathy [Unknown]
  - Haemangioma [Unknown]
  - Intervertebral disc protrusion [Unknown]
  - Tumour marker increased [Unknown]
  - Malignant neoplasm progression [Unknown]
  - Palmar-plantar erythrodysaesthesia syndrome [Unknown]
  - Metastases to bone [Unknown]
  - Nausea [Unknown]
  - Vomiting [Unknown]
  - Constipation [Unknown]
  - Renal mass [Unknown]
  - Pulmonary mass [Unknown]
  - Pathological fracture [Unknown]
  - Atrophy [Unknown]
  - Metastases to spine [Unknown]
  - Pain in extremity [Unknown]
  - Perforation bile duct [Unknown]
  - Gastrooesophageal reflux disease [Unknown]
  - Retroperitoneal neoplasm metastatic [Unknown]
  - Hypoacusis [Unknown]
  - Diverticulum [Unknown]
  - Ureteric obstruction [Unknown]
  - Sepsis [Unknown]
  - Dizziness [Unknown]
  - Hiccups [Unknown]
  - Aphagia [Unknown]
  - Metastases to lung [Unknown]
  - Neoplasm progression [Unknown]
  - Flank pain [Unknown]
  - Deep vein thrombosis [Unknown]
  - Hydronephrosis [Unknown]
  - Paraesthesia [Unknown]
  - Hypoaesthesia [Unknown]
  - Metastases to lymph nodes [Unknown]
  - Disaccharide metabolism disorder [Unknown]
  - Malabsorption [Unknown]
  - Dysphonia [Unknown]
  - Adrenal mass [Unknown]
  - Plasma protein metabolism disorder [Unknown]
  - Upper respiratory tract infection [Recovered/Resolved]
  - Intermittent claudication [Unknown]
  - Renal failure [Unknown]
  - Neuropathy peripheral [Recovered/Resolved]
  - Toothache [Unknown]
  - Cerebral atrophy [Unknown]
  - Back pain [Unknown]
  - Febrile neutropenia [Unknown]
  - Decreased appetite [Unknown]
  - Candida infection [Unknown]
  - Hypokalaemia [Unknown]
  - Urinary retention [Unknown]
  - Pollakiuria [Unknown]
  - Tachycardia [Unknown]
  - Hallucination [Recovering/Resolving]
  - Aortic arteriosclerosis [Unknown]
  - Vertebral foraminal stenosis [Unknown]
  - Spinal compression fracture [Unknown]
  - Thyroid neoplasm [Unknown]
  - Vascular calcification [Unknown]
  - Dental caries [Unknown]
  - Exposed bone in jaw [Unknown]
  - Bone loss [Unknown]
  - Tooth abscess [Unknown]
  - Exostosis of jaw [Unknown]
